FAERS Safety Report 13443015 (Version 1)
Quarter: 2017Q2

REPORT INFORMATION
  Report Type: Spontaneous
  Country: US (occurrence: US)
  Receive Date: 20170413
  Receipt Date: 20170413
  Transmission Date: 20170830
  Serious: Yes (Other)
  Sender: FDA-Public Use
  Company Number: None

PATIENT
  Age: 67 Year
  Sex: Female

DRUGS (2)
  1. IBRANCE [Suspect]
     Active Substance: PALBOCICLIB
     Indication: BREAST CANCER FEMALE
     Dosage: 125MG DAILY FOR 21 DAYS ON 7 DAYS OFF ORAL
     Route: 048
     Dates: start: 20170131, end: 20170410
  2. IBRANCE [Suspect]
     Active Substance: PALBOCICLIB
     Indication: METASTASES TO BONE
     Dosage: 125MG DAILY FOR 21 DAYS ON 7 DAYS OFF ORAL
     Route: 048
     Dates: start: 20170131, end: 20170410

REACTIONS (1)
  - Disease progression [None]

NARRATIVE: CASE EVENT DATE: 20170410
